FAERS Safety Report 21467178 (Version 1)
Quarter: 2022Q4

REPORT INFORMATION
  Report Type: Spontaneous
  Country: US (occurrence: US)
  Receive Date: 20221017
  Receipt Date: 20221017
  Transmission Date: 20230113
  Serious: No
  Sender: FDA-Public Use
  Company Number: US-Blueprint Medicines Corporation-492

PATIENT
  Sex: Female

DRUGS (1)
  1. AYVAKIT [Suspect]
     Active Substance: AVAPRITINIB
     Indication: Systemic mastocytosis
     Route: 065
     Dates: start: 20221010

REACTIONS (6)
  - Fungal infection [Unknown]
  - Blister [Unknown]
  - Pruritus [Unknown]
  - Platelet count decreased [Unknown]
  - Blood iron decreased [Unknown]
  - Product dose omission issue [Unknown]
